FAERS Safety Report 7795918-6 (Version None)
Quarter: 2011Q4

REPORT INFORMATION
  Report Type: 
  Country: None (occurrence: None)
  Receive Date: 20111004
  Receipt Date: 20110922
  Transmission Date: 20120403
  Serious: Yes (Hospitalization)
  Sender: FDA-Public Use
  Company Number: US-ELI_LILLY_AND_COMPANY-US201104000380

PATIENT
  Sex: Female

DRUGS (3)
  1. FORTEO [Suspect]
     Dosage: 20 UG, QD
  2. FORTEO [Suspect]
     Indication: OSTEOPOROSIS
     Dosage: 20 UG, QD
     Route: 065
     Dates: start: 20110201
  3. FORTEO [Suspect]
     Dosage: 20 UG, QD
     Route: 065

REACTIONS (9)
  - FALL [None]
  - BLOOD PRESSURE INCREASED [None]
  - INJECTION SITE PAIN [None]
  - HOSPITALISATION [None]
  - VISUAL IMPAIRMENT [None]
  - ADDISON'S DISEASE [None]
  - MUSCULOSKELETAL PAIN [None]
  - MALAISE [None]
  - PAIN [None]
